FAERS Safety Report 13193901 (Version 3)
Quarter: 2017Q2

REPORT INFORMATION
  Report Type: Spontaneous
  Country: US (occurrence: US)
  Receive Date: 20170207
  Receipt Date: 20170512
  Transmission Date: 20170830
  Serious: Yes (Hospitalization)
  Sender: FDA-Public Use
  Company Number: US-RARE DISEASE THERAPEUTICS, INC.-1062843

PATIENT
  Age: 8 Year
  Sex: Female
  Weight: 35 kg

DRUGS (4)
  1. PURIXAN [Suspect]
     Active Substance: MERCAPTOPURINE
     Indication: COLITIS ULCERATIVE
     Dates: start: 20161111
  2. UCERIS [Concomitant]
     Active Substance: BUDESONIDE
  3. PENTASA [Concomitant]
     Active Substance: MESALAMINE
  4. FLINTSTONES PLUS IMMUNITY SUPPORT [Concomitant]

REACTIONS (2)
  - Off label use [None]
  - Pelvic inflammatory disease [Not Recovered/Not Resolved]

NARRATIVE: CASE EVENT DATE: 20161111
